FAERS Safety Report 19732976 (Version 1)
Quarter: 2021Q3

REPORT INFORMATION
  Report Type: Spontaneous
  Country: US (occurrence: US)
  Receive Date: 20210822
  Receipt Date: 20210822
  Transmission Date: 20211014
  Serious: Yes (Disabling)
  Sender: FDA-Public Use
  Company Number: None

PATIENT
  Age: 40 Year
  Sex: Female
  Weight: 64.35 kg

DRUGS (6)
  1. VITAMIN D [Concomitant]
     Active Substance: VITAMIN D NOS
  2. PROBIOTICS [Concomitant]
     Active Substance: PROBIOTICS NOS
  3. ALPRAZOLAM. [Concomitant]
     Active Substance: ALPRAZOLAM
  4. CIPROFLOXACIN. [Suspect]
     Active Substance: CIPROFLOXACIN
     Indication: INFECTION PARASITIC
     Dates: start: 20170923, end: 20170930
  5. VITAMIN C [Concomitant]
     Active Substance: ASCORBIC ACID
  6. MELATONIN [Concomitant]
     Active Substance: MELATONIN

REACTIONS (12)
  - Fatigue [None]
  - Body temperature decreased [None]
  - Abdominal pain upper [None]
  - Asthenia [None]
  - Tinnitus [None]
  - Feeling abnormal [None]
  - Intervertebral disc protrusion [None]
  - Migraine [None]
  - Night sweats [None]
  - Nausea [None]
  - Vertigo [None]
  - Blood urine present [None]

NARRATIVE: CASE EVENT DATE: 20170926
